FAERS Safety Report 10606493 (Version 1)
Quarter: 2014Q4

REPORT INFORMATION
  Report Type: Spontaneous
  Country: US (occurrence: None)
  Receive Date: 20141124
  Receipt Date: 20141124
  Transmission Date: 20150529
  Serious: No
  Sender: FDA-Public Use
  Company Number: None

PATIENT
  Age: 31 Year
  Sex: Female
  Weight: 96.62 kg

DRUGS (1)
  1. LAMOTRIGINE. [Suspect]
     Active Substance: LAMOTRIGINE
     Indication: MOOD SWINGS
     Dosage: 30 TABLET
     Route: 048
     Dates: start: 20141031, end: 20141121

REACTIONS (2)
  - Accidental overdose [None]
  - Drug dispensing error [None]

NARRATIVE: CASE EVENT DATE: 20141031
